FAERS Safety Report 22318354 (Version 2)
Quarter: 2023Q2

REPORT INFORMATION
  Report Type: Spontaneous
  Country: US (occurrence: US)
  Receive Date: 20230515
  Receipt Date: 20230607
  Transmission Date: 20230722
  Serious: Yes (Death)
  Sender: FDA-Public Use
  Company Number: US-Coherus Biosciences Inc.-2023-COH-US000225

PATIENT

DRUGS (1)
  1. CIMERLI [Suspect]
     Active Substance: RANIBIZUMAB-EQRN
     Indication: Diabetic retinal oedema
     Dosage: 0.3 MG, ONCE, INJECTION LEFT EYE ONLY
     Route: 031
     Dates: start: 20230419

REACTIONS (1)
  - Death [Fatal]

NARRATIVE: CASE EVENT DATE: 20230426
